FAERS Safety Report 6444812-1 (Version None)
Quarter: 2009Q4

REPORT INFORMATION
  Report Type: 
  Country: None (occurrence: None)
  Receive Date: 20091118
  Receipt Date: 20091105
  Transmission Date: 20100525
  Serious: Yes (Hospitalization, Other)
  Sender: FDA-Public Use
  Company Number: PHHY2009CA10609

PATIENT
  Sex: Male

DRUGS (4)
  1. SANDOSTATIN LAR [Suspect]
     Indication: CARCINOID SYNDROME
     Dosage: 20 MG, QMO
     Route: 030
     Dates: start: 20061123
  2. CIPRO [Concomitant]
     Dosage: 500 MG, BID
  3. ANTIHYPERTENSIVE DRUGS [Concomitant]
  4. ENSURE [Concomitant]

REACTIONS (23)
  - ABDOMINAL DISCOMFORT [None]
  - ABDOMINAL DISTENSION [None]
  - ABDOMINAL PAIN [None]
  - ASCITES [None]
  - ASTHENIA [None]
  - BLOOD PRESSURE DECREASED [None]
  - CONSTIPATION [None]
  - DECREASED APPETITE [None]
  - DEPRESSED MOOD [None]
  - DYSPNOEA [None]
  - GENERAL PHYSICAL HEALTH DETERIORATION [None]
  - GROIN PAIN [None]
  - HAEMORRHOIDS [None]
  - HEART RATE INCREASED [None]
  - MALAISE [None]
  - PARACENTESIS [None]
  - PELVIC PAIN [None]
  - PRURITUS [None]
  - RECTAL HAEMORRHAGE [None]
  - SCROTAL INFECTION [None]
  - SCROTAL PAIN [None]
  - URINE OUTPUT DECREASED [None]
  - WEIGHT DECREASED [None]
